FAERS Safety Report 8560105-0 (Version None)
Quarter: 2012Q3

REPORT INFORMATION
  Report Type: 
  Country: None (occurrence: None)
  Receive Date: 20120802
  Receipt Date: 20120723
  Transmission Date: 20120928
  Serious: Yes (Death, Life-Threatening, Hospitalization, Other)
  Sender: FDA-Public Use
  Company Number: FR-CELGENEUS-056-21880-12072466

PATIENT
  Sex: Female
  Weight: 75 kg

DRUGS (6)
  1. VFEND [Suspect]
     Indication: PROPHYLAXIS
     Dosage: 400 MILLIGRAM
     Route: 048
     Dates: start: 20120306, end: 20120717
  2. RED BLOOD CELLS [Concomitant]
     Route: 041
  3. DEXAMETHASONE [Concomitant]
     Indication: ACUTE LYMPHOCYTIC LEUKAEMIA
     Route: 065
  4. REVLIMID [Suspect]
     Route: 048
     Dates: start: 20120413
  5. REVLIMID [Suspect]
     Dosage: 25 MILLIGRAM
     Route: 048
     Dates: start: 20120706, end: 20120717
  6. ATOVAQUONE [Suspect]
     Indication: PROPHYLAXIS
     Dosage: 1.5 GRAM
     Route: 048
     Dates: start: 20120315, end: 20120717

REACTIONS (2)
  - HEPATITIS ACUTE [None]
  - LOBAR PNEUMONIA [None]
